FAERS Safety Report 11309492 (Version 1)
Quarter: 2015Q3

REPORT INFORMATION
  Report Type: Spontaneous
  Country: GB (occurrence: GB)
  Receive Date: 20150724
  Receipt Date: 20150724
  Transmission Date: 20151125
  Serious: Yes (Other)
  Sender: FDA-Public Use
  Company Number: GB-GLAXOSMITHKLINE INC.-GB2015104869

PATIENT
  Age: 27 Year
  Sex: Male
  Weight: 85 kg

DRUGS (2)
  1. ATOMOXETINE [Concomitant]
     Active Substance: ATOMOXETINE
  2. LAMICTAL [Suspect]
     Active Substance: LAMOTRIGINE
     Indication: BIPOLAR DISORDER
     Route: 048

REACTIONS (1)
  - Alopecia [Not Recovered/Not Resolved]
